FAERS Safety Report 14409452 (Version 1)
Quarter: 2018Q1

REPORT INFORMATION
  Report Type: Spontaneous
  Country: US (occurrence: US)
  Receive Date: 20180119
  Receipt Date: 20180119
  Transmission Date: 20180509
  Serious: No
  Sender: FDA-Public Use
  Company Number: US-009507513-1801USA006179

PATIENT
  Sex: Female
  Weight: 63.49 kg

DRUGS (1)
  1. NEXPLANON [Suspect]
     Active Substance: ETONOGESTREL
     Indication: CONTRACEPTION
     Dosage: IMPLANT, LEFT ARM, EVERY 4 YEAR
     Route: 059

REACTIONS (7)
  - Headache [Unknown]
  - Menstruation irregular [Unknown]
  - Acne [Unknown]
  - Incorrect drug administration duration [Unknown]
  - Weight increased [Unknown]
  - Amenorrhoea [Unknown]
  - Vaginal haemorrhage [Unknown]
